FAERS Safety Report 22192323 (Version 1)
Quarter: 2023Q2

REPORT INFORMATION
  Report Type: Spontaneous
  Country: US (occurrence: None)
  Receive Date: 20230409
  Receipt Date: 20230409
  Transmission Date: 20230722
  Serious: Yes (Life-Threatening, Hospitalization)
  Sender: FDA-Public Use
  Company Number: None

PATIENT
  Age: 50 Year
  Sex: Female
  Weight: 86.4 kg

DRUGS (2)
  1. QELBREE [Suspect]
     Active Substance: VILOXAZINE HYDROCHLORIDE
     Indication: Attention deficit hyperactivity disorder
     Dosage: 2 TABLETS AT BEDTIME ORAL?
     Route: 048
     Dates: start: 20230315, end: 20230402
  2. CONCERTA [Concomitant]
     Active Substance: METHYLPHENIDATE HYDROCHLORIDE

REACTIONS (13)
  - Feeling abnormal [None]
  - Dyspnoea [None]
  - Drug hypersensitivity [None]
  - Impaired work ability [None]
  - Headache [None]
  - Sinus disorder [None]
  - Head discomfort [None]
  - Toothache [None]
  - Blood pressure increased [None]
  - Cerebrovascular accident [None]
  - Vomiting [None]
  - Fatigue [None]
  - Bedridden [None]

NARRATIVE: CASE EVENT DATE: 20230404
